FAERS Safety Report 25133817 (Version 3)
Quarter: 2025Q2

REPORT INFORMATION
  Report Type: Report from Study
  Country: US (occurrence: US)
  Receive Date: 20250328
  Receipt Date: 20250620
  Transmission Date: 20250716
  Serious: Yes (Other)
  Sender: UCB
  Company Number: US-UCBSA-2025017468

PATIENT
  Age: 8 Year
  Sex: Female
  Weight: 27.58 kg

DRUGS (5)
  1. FINTEPLA [Suspect]
     Active Substance: FENFLURAMINE
     Indication: Severe myoclonic epilepsy of infancy
     Dosage: 4 MILLILITER, 2X/DAY (BID)
     Route: 048
     Dates: start: 20220610
  2. FINTEPLA [Suspect]
     Active Substance: FENFLURAMINE
  3. FINTEPLA [Suspect]
     Active Substance: FENFLURAMINE
     Dosage: 4.5 MILLILITER, 2X/DAY (BID)
  4. KEPPRA [Suspect]
     Active Substance: LEVETIRACETAM
     Indication: Product used for unknown indication
  5. BRIVIACT [Suspect]
     Active Substance: BRIVARACETAM
     Indication: Product used for unknown indication

REACTIONS (5)
  - Seizure [Recovering/Resolving]
  - Hypersensitivity [Recovering/Resolving]
  - Dyskinesia [Not Recovered/Not Resolved]
  - Psychomotor hyperactivity [Unknown]
  - Therapeutic product effect incomplete [Unknown]

NARRATIVE: CASE EVENT DATE: 20250319
